FAERS Safety Report 25385203 (Version 1)
Quarter: 2025Q2

REPORT INFORMATION
  Report Type: Spontaneous
  Country: CN (occurrence: CN)
  Receive Date: 20250602
  Receipt Date: 20250602
  Transmission Date: 20250716
  Serious: Yes (Other)
  Sender: GILEAD
  Company Number: CN-GILEAD-2025-0714938

PATIENT
  Age: 53 Year
  Sex: Male

DRUGS (1)
  1. EPCLUSA [Suspect]
     Active Substance: SOFOSBUVIR\VELPATASVIR
     Indication: Chronic hepatitis C
     Dosage: 1 TABLET/D ORALLY (SOFOSBUVIR 400 MG AND VELPATASVIR 100 MG)
     Route: 048
     Dates: start: 202107

REACTIONS (2)
  - Hepatitis C [Recovered/Resolved]
  - Drug ineffective [Unknown]
